FAERS Safety Report 14844229 (Version 7)
Quarter: 2020Q2

REPORT INFORMATION
  Report Type: Report from Study
  Country: US (occurrence: US)
  Receive Date: 20180503
  Receipt Date: 20200430
  Transmission Date: 20200713
  Serious: Yes (Hospitalization, Other)
  Sender: FDA-Public Use
  Company Number: US-ACTELION-A-NJ2017-157934

PATIENT
  Age: 22 Year
  Sex: Female

DRUGS (10)
  1. OPSUMIT [Suspect]
     Active Substance: MACITENTAN
     Indication: PULMONARY ARTERIAL HYPERTENSION
     Dosage: 10 MG, QD
     Route: 048
     Dates: start: 20101220, end: 20180428
  2. LORATADINE. [Concomitant]
     Active Substance: LORATADINE
     Dosage: 10 MG, UNK
  3. OXYGEN. [Concomitant]
     Active Substance: OXYGEN
     Dosage: 3 L, WHEN WALKING
  4. OXYGEN. [Concomitant]
     Active Substance: OXYGEN
     Dosage: 5 L, WHEN SLEEPING
  5. REMODULIN [Suspect]
     Active Substance: TREPROSTINIL
     Indication: PRODUCT USED FOR UNKNOWN INDICATION
     Route: 065
  6. SILDENAFIL. [Suspect]
     Active Substance: SILDENAFIL
     Indication: PRODUCT USED FOR UNKNOWN INDICATION
     Route: 065
  7. ASPIRIN. [Concomitant]
     Active Substance: ASPIRIN
     Dosage: 81 MG, UNK
  8. LAMOTRIGINE. [Concomitant]
     Active Substance: LAMOTRIGINE
     Dosage: 100 MG, UNK
  9. RANITIDINE. [Concomitant]
     Active Substance: RANITIDINE
     Dosage: 150 MG, UNK
  10. TOPAMAX [Concomitant]
     Active Substance: TOPIRAMATE
     Dosage: 50 MG, UNK

REACTIONS (25)
  - Upper respiratory tract infection [Recovering/Resolving]
  - Fatigue [Recovering/Resolving]
  - Chills [Recovered/Resolved]
  - Coronary artery thrombosis [Recovered/Resolved]
  - Oxygen saturation decreased [Recovered/Resolved]
  - Pulmonary arterial hypertension [Recovered/Resolved]
  - Condition aggravated [Recovered/Resolved]
  - Anxiety [Recovered/Resolved]
  - Catheter site rash [Recovered/Resolved]
  - Catheter site erythema [Recovered/Resolved]
  - PO2 decreased [Recovered/Resolved]
  - Chest pain [Recovered/Resolved]
  - Pyrexia [Recovered/Resolved]
  - Heart and lung transplant [Recovered/Resolved]
  - Hypoxia [Recovered/Resolved]
  - Catheter site discharge [Recovered/Resolved]
  - Exercise tolerance decreased [Not Recovered/Not Resolved]
  - Palpitations [Recovering/Resolving]
  - Thrombectomy [Recovered/Resolved]
  - Coronary angioplasty [Recovered/Resolved]
  - Wheezing [Recovered/Resolved]
  - Myocardial infarction [Recovered/Resolved]
  - Dyspnoea [Recovered/Resolved]
  - Dermatitis contact [Recovered/Resolved]
  - Dyspnoea exertional [Recovered/Resolved]

NARRATIVE: CASE EVENT DATE: 20170530
